FAERS Safety Report 5576869-4 (Version None)
Quarter: 2007Q4

REPORT INFORMATION
  Report Type: 
  Country: None (occurrence: None)
  Receive Date: 20071228
  Receipt Date: 20071218
  Transmission Date: 20080405
  Serious: Yes (Hospitalization, Other)
  Sender: FDA-Public Use
  Company Number: US-RANBAXY-2007US-09199

PATIENT

DRUGS (6)
  1. CLARITHROMYCIN [Suspect]
     Indication: MITRAL VALVE PROLAPSE
     Dosage: 500 MG, QD
     Dates: start: 20070727, end: 20070728
  2. TOPROL-XL [Concomitant]
     Indication: DRUG USE FOR UNKNOWN INDICATION
  3. ATACAND [Concomitant]
  4. PREVACID [Concomitant]
  5. SIQUILFATE [Concomitant]
  6. FLUTICASONE PROPIONATE [Concomitant]

REACTIONS (7)
  - BURNING SENSATION [None]
  - HYPERHIDROSIS [None]
  - HYPERSENSITIVITY [None]
  - HYPOTENSION [None]
  - PRURITUS [None]
  - SWOLLEN TONGUE [None]
  - URTICARIA [None]
